FAERS Safety Report 23692473 (Version 6)
Quarter: 2024Q4

REPORT INFORMATION
  Report Type: Report from Study
  Country: ES (occurrence: ES)
  Receive Date: 20240401
  Receipt Date: 20241108
  Transmission Date: 20250115
  Serious: Yes (Hospitalization)
  Sender: SANOFI AVENTIS
  Company Number: ES-SA-2024SA089254

PATIENT
  Age: 58 Year
  Sex: Male
  Weight: 80 kg

DRUGS (19)
  1. ISATUXIMAB [Suspect]
     Active Substance: ISATUXIMAB
     Indication: Plasma cell myeloma refractory
     Dosage: 900 MG, QW
     Route: 065
     Dates: start: 20230614, end: 20230705
  2. ISATUXIMAB [Suspect]
     Active Substance: ISATUXIMAB
     Dosage: 900 MG, BIW
     Dates: start: 20230712, end: 20230726
  3. ISATUXIMAB [Suspect]
     Active Substance: ISATUXIMAB
     Dosage: 900 MG, BIW
     Dates: start: 20230809, end: 20230823
  4. ISATUXIMAB [Suspect]
     Active Substance: ISATUXIMAB
     Dosage: 900 MG, BIW
     Dates: start: 20230913, end: 20230927
  5. ISATUXIMAB [Suspect]
     Active Substance: ISATUXIMAB
     Dosage: 900 MG, BIW
     Dates: start: 20231010, end: 20231024
  6. ISATUXIMAB [Suspect]
     Active Substance: ISATUXIMAB
     Dosage: 900 MG, BIW
     Dates: start: 20231107, end: 20231121
  7. DEXAMETHASONE [Suspect]
     Active Substance: DEXAMETHASONE
     Indication: Plasma cell myeloma refractory
     Dosage: 20 MG, BIW
     Dates: start: 20230614, end: 20230629
  8. DEXAMETHASONE [Suspect]
     Active Substance: DEXAMETHASONE
     Dosage: 20 MG, BIW
     Dates: start: 20230712, end: 20230727
  9. DEXAMETHASONE [Suspect]
     Active Substance: DEXAMETHASONE
     Dosage: 20 MG, BIW
     Dates: start: 20230809, end: 20230824
  10. DEXAMETHASONE [Suspect]
     Active Substance: DEXAMETHASONE
     Dosage: 20 MG, BIW
     Dates: start: 20230913, end: 20230928
  11. DEXAMETHASONE [Suspect]
     Active Substance: DEXAMETHASONE
     Dosage: 20 MG, BIW
     Dates: start: 20231010, end: 20231025
  12. DEXAMETHASONE [Suspect]
     Active Substance: DEXAMETHASONE
     Dosage: 20 MG, BIW
     Dates: start: 20231107, end: 20231122
  13. CARFILZOMIB [Suspect]
     Active Substance: CARFILZOMIB
     Indication: Plasma cell myeloma refractory
     Dosage: 40 MG, BIW
     Dates: start: 20230614, end: 20230629
  14. CARFILZOMIB [Suspect]
     Active Substance: CARFILZOMIB
     Dosage: 40 MG, BIW
     Dates: start: 20230712, end: 20230727
  15. CARFILZOMIB [Suspect]
     Active Substance: CARFILZOMIB
     Dosage: 40 MG, BIW
     Dates: start: 20230809, end: 20230824
  16. CARFILZOMIB [Suspect]
     Active Substance: CARFILZOMIB
     Dosage: 40 MG, BIW
     Dates: start: 20230913, end: 20230928
  17. CARFILZOMIB [Suspect]
     Active Substance: CARFILZOMIB
     Dosage: 40 MG, BIW
     Dates: start: 20231010, end: 20231025
  18. CARFILZOMIB [Suspect]
     Active Substance: CARFILZOMIB
     Dosage: 40 MG, BIW
     Dates: start: 20231107, end: 20231122
  19. ALLOPURINOL [Concomitant]
     Active Substance: ALLOPURINOL
     Indication: Arthritis
     Dosage: UNK, QCY
     Dates: start: 20120925

REACTIONS (1)
  - Encephalitis [Recovered/Resolved]

NARRATIVE: CASE EVENT DATE: 20240101
